FAERS Safety Report 10027399 (Version 2)
Quarter: 2014Q2

REPORT INFORMATION
  Report Type: Spontaneous
  Country: SG (occurrence: None)
  Receive Date: 20140318
  Receipt Date: 20140501
  Transmission Date: 20141212
  Serious: Yes (Other)
  Sender: FDA-Public Use
  Company Number: SYM-2014-18620

PATIENT
  Age: 35 Year
  Sex: Male

DRUGS (1)
  1. BUPROPION (BUPROPION) (150 MILLIGRAM, TABLET) (BUPROPION) [Suspect]
     Indication: DEPRESSION
     Route: 048
     Dates: start: 20131101, end: 20140101

REACTIONS (2)
  - Ileus paralytic [None]
  - Constipation [None]
